FAERS Safety Report 9996569 (Version 1)
Quarter: 2014Q1

REPORT INFORMATION
  Report Type: Spontaneous
  Country: BE (occurrence: BE)
  Receive Date: 20140311
  Receipt Date: 20140311
  Transmission Date: 20141002
  Serious: Yes (Other)
  Sender: FDA-Public Use
  Company Number: BE-BRISTOL-MYERS SQUIBB COMPANY-20420170

PATIENT
  Age: 54 Year
  Sex: Male

DRUGS (3)
  1. STOCRIN [Suspect]
     Indication: HIV INFECTION
     Dates: start: 200709
  2. VIREAD [Suspect]
     Indication: HIV INFECTION
  3. EPIVIR [Suspect]
     Indication: HIV INFECTION

REACTIONS (1)
  - Renal failure chronic [Unknown]
